FAERS Safety Report 8798450 (Version 1)
Quarter: 2012Q4

REPORT INFORMATION
  Report Type: 
  Country: IT (occurrence: IT)
  Receive Date: 20120920
  Receipt Date: 20120920
  Transmission Date: 20130627
  Serious: Yes (Other)
  Sender: FDA-Public Use
  Company Number: IT-PFIZER INC-2012230744

PATIENT

DRUGS (1)
  1. SUTENT [Suspect]
     Indication: RENAL CELL CARCINOMA
     Dosage: 37.5 mg, 28 days/42 days
     Route: 048
     Dates: start: 20090302, end: 20090731

REACTIONS (2)
  - Pulmonary arterial pressure increased [Recovering/Resolving]
  - Left ventricular end-diastolic pressure increased [Recovering/Resolving]
